FAERS Safety Report 21260775 (Version 2)
Quarter: 2023Q1

REPORT INFORMATION
  Report Type: Spontaneous
  Country: US (occurrence: US)
  Receive Date: 20220826
  Receipt Date: 20230225
  Transmission Date: 20230417
  Serious: No
  Sender: FDA-Public Use
  Company Number: US-BANNER LIFE SCIENCES, LLC-2022BAN000154

PATIENT

DRUGS (2)
  1. BAFIERTAM [Suspect]
     Active Substance: MONOMETHYL FUMARATE
     Indication: Product used for unknown indication
     Dosage: 95 MILLIGRAM, TAKE 1 CAPSULES TWICE A DAY FOR 7 DAYS
     Route: 048
     Dates: start: 20220610, end: 202206
  2. BAFIERTAM [Suspect]
     Active Substance: MONOMETHYL FUMARATE
     Dosage: TAKE TWO CAPSULES (190MG) TWICE A DAY.
     Route: 048
     Dates: start: 202206

REACTIONS (5)
  - Pruritus [Unknown]
  - Flushing [Unknown]
  - Eye movement disorder [Unknown]
  - Fatigue [Unknown]
  - Balance disorder [Unknown]

NARRATIVE: CASE EVENT DATE: 20220601
